FAERS Safety Report 8584002-X (Version None)
Quarter: 2012Q3

REPORT INFORMATION
  Report Type: 
  Country: None (occurrence: None)
  Receive Date: 20120810
  Receipt Date: 20120723
  Transmission Date: 20120928
  Serious: No
  Sender: FDA-Public Use
  Company Number: US-009507513-2012SP010524

PATIENT

DRUGS (4)
  1. SAPHRIS [Suspect]
     Indication: BIPOLAR DISORDER
     Dosage: 20 MG, HS
     Route: 060
     Dates: start: 20110317
  2. GABAPENTIN [Concomitant]
     Dosage: 1200 MG, QD
  3. PROZOSIN [Concomitant]
     Dosage: 1 MG, UNK
  4. XANAX [Concomitant]
     Dosage: 2 MG, TID

REACTIONS (1)
  - GINGIVITIS [None]
